FAERS Safety Report 6138704-5 (Version None)
Quarter: 2009Q1

REPORT INFORMATION
  Report Type: 
  Country: None (occurrence: None)
  Receive Date: 20090331
  Receipt Date: 20090324
  Transmission Date: 20090719
  Serious: No
  Sender: FDA-Public Use
  Company Number: US-JNJFOC-20090306697

PATIENT
  Sex: Female
  Weight: 90.72 kg

DRUGS (2)
  1. DURAGESIC-100 [Suspect]
     Indication: BACK PAIN
     Route: 062
  2. OXYCODONE HCL [Concomitant]
     Indication: BACK PAIN
     Dosage: 7.5/325 MG TABLET UPTO 4/DAY/ORAL/AS NEEDED
     Route: 048

REACTIONS (2)
  - APPLICATION SITE RASH [None]
  - WRONG TECHNIQUE IN DRUG USAGE PROCESS [None]
